FAERS Safety Report 4703413-3 (Version None)
Quarter: 2005Q2

REPORT INFORMATION
  Report Type: 
  Country: None (occurrence: None)
  Receive Date: 20050629
  Receipt Date: 20050620
  Transmission Date: 20051028
  Serious: Yes (Hospitalization)
  Sender: FDA-Public Use
  Company Number: USA-2005-0020626

PATIENT
  Age: 9 Year
  Sex: Male

DRUGS (1)
  1. POVIDONE IODINE [Suspect]

REACTIONS (2)
  - ANAPHYLACTIC REACTION [None]
  - SKIN TEST POSITIVE [None]
